FAERS Safety Report 11525780 (Version 2)
Quarter: 2015Q3

REPORT INFORMATION
  Report Type: Report from Study
  Country: US (occurrence: US)
  Receive Date: 20150918
  Receipt Date: 20150923
  Transmission Date: 20151125
  Serious: Yes (Other)
  Sender: FDA-Public Use
  Company Number: US-ABBVIE-15K-163-1462956-00

PATIENT
  Age: 23 Year
  Sex: Female

DRUGS (2)
  1. LUTERA [Concomitant]
     Active Substance: ETHINYL ESTRADIOL\LEVONORGESTREL
     Indication: CONTRACEPTION
  2. HUMIRA [Suspect]
     Active Substance: ADALIMUMAB
     Indication: PSORIASIS
     Route: 058
     Dates: start: 201506

REACTIONS (6)
  - Otorrhoea [Recovering/Resolving]
  - Cough [Recovering/Resolving]
  - Tympanic membrane perforation [Unknown]
  - Deafness unilateral [Not Recovered/Not Resolved]
  - Nasal congestion [Unknown]
  - Otitis media [Not Recovered/Not Resolved]

NARRATIVE: CASE EVENT DATE: 2015
